FAERS Safety Report 22647044 (Version 1)
Quarter: 2023Q2

REPORT INFORMATION
  Report Type: Report from Study
  Country: BG (occurrence: BG)
  Receive Date: 20230627
  Receipt Date: 20230627
  Transmission Date: 20230722
  Serious: Yes (Hospitalization)
  Sender: FDA-Public Use
  Company Number: BG-AKCEA THERAPEUTICS, INC.-2023IS001509

PATIENT

DRUGS (16)
  1. TEGSEDI [Suspect]
     Active Substance: INOTERSEN SODIUM
     Indication: Product used for unknown indication
     Dosage: 284 MILLIGRAM, QW
     Route: 058
     Dates: start: 20230329
  2. RETINOL [Concomitant]
     Active Substance: RETINOL
     Indication: Product used for unknown indication
     Dosage: 2500 INTERNATIONAL UNIT, QD
     Route: 065
  3. RENOVIA [Concomitant]
     Indication: Hypertension
     Dosage: 10 MILLIGRAM, BID
     Route: 065
  4. RENOVIA [Concomitant]
     Dosage: 10 MILLIGRAM, QD
     Route: 065
  5. ALLOPURINOL [Concomitant]
     Active Substance: ALLOPURINOL
     Indication: Product used for unknown indication
     Dosage: 100 MILLIGRAM, QD
     Route: 065
  6. ALLOPURINOL [Concomitant]
     Active Substance: ALLOPURINOL
     Indication: Gout
  7. PREGABALIN [Concomitant]
     Active Substance: PREGABALIN
     Indication: Epilepsy
     Dosage: 75 MILLIGRAM, BID
     Route: 065
  8. PREGABALIN [Concomitant]
     Active Substance: PREGABALIN
     Dosage: 75 MILLIGRAM BDT
     Route: 065
  9. AGAPURIN [Concomitant]
     Indication: Peripheral arterial occlusive disease
     Dosage: 400 MILLIGRAM, BID
     Route: 065
  10. .ALPHA.-LIPOIC ACID [Concomitant]
     Active Substance: .ALPHA.-LIPOIC ACID
     Indication: Product used for unknown indication
     Dosage: 600 MILLIGRAM, MORNING
     Route: 048
  11. .ALPHA.-LIPOIC ACID [Concomitant]
     Active Substance: .ALPHA.-LIPOIC ACID
     Dosage: 600 MILLIGRAM HROD
     Route: 065
  12. SILODOSIN [Concomitant]
     Active Substance: SILODOSIN
     Indication: Benign prostatic hyperplasia
     Dosage: 8 MILLIGRAM, QDX7DAYS, EVENING
     Route: 065
  13. DIAB [Concomitant]
     Indication: Product used for unknown indication
     Dosage: 30 MILLIGRAM
     Route: 048
  14. PANTOPRAZOLE SODIUM [Concomitant]
     Active Substance: PANTOPRAZOLE SODIUM
     Indication: Product used for unknown indication
     Dosage: 20 MILLIGRAM EVENING
     Route: 065
  15. TROMBEX [CLOPIDOGREL BISULFATE] [Concomitant]
     Indication: Product used for unknown indication
     Dosage: 75 MILLIGRAM, EVENING
     Route: 065
  16. FLEXID [FUSIDATE SODIUM] [Concomitant]
     Indication: Product used for unknown indication
     Dosage: 500 MILLIGRAM
     Route: 042

REACTIONS (24)
  - Haemorrhage [Unknown]
  - Haematuria [Not Recovered/Not Resolved]
  - Joint swelling [Unknown]
  - Hypoaesthesia [Unknown]
  - Anaemia [Unknown]
  - Bladder disorder [Unknown]
  - Haematuria [Recovered/Resolved]
  - Chills [Recovered/Resolved]
  - Prostatitis [Unknown]
  - Red blood cells urine positive [Unknown]
  - White blood cells urine positive [Unknown]
  - Crystal urine present [Unknown]
  - Haemoglobin urine present [Unknown]
  - Urinary sediment abnormal [Unknown]
  - Inflammation [Unknown]
  - Red blood cell count decreased [Unknown]
  - Haemoglobin decreased [Unknown]
  - Haematocrit decreased [Unknown]
  - Mean platelet volume increased [Unknown]
  - Platelet distribution width increased [Unknown]
  - Blood urea increased [Unknown]
  - Vitamin B12 increased [Unknown]
  - C-reactive protein increased [Unknown]
  - Suprapubic pain [Unknown]

NARRATIVE: CASE EVENT DATE: 20230517
